FAERS Safety Report 11493029 (Version 1)
Quarter: 2015Q3

REPORT INFORMATION
  Report Type: Spontaneous
  Country: US (occurrence: US)
  Receive Date: 20150911
  Receipt Date: 20150911
  Transmission Date: 20151125
  Serious: Yes (Death)
  Sender: FDA-Public Use
  Company Number: US-ROCHE-1566427

PATIENT
  Age: 60 Year
  Sex: Female

DRUGS (1)
  1. XELODA [Suspect]
     Active Substance: CAPECITABINE
     Indication: PRODUCT USED FOR UNKNOWN INDICATION
     Dosage: FOR 14 DAYS , OFF 7 DAYS
     Route: 048
     Dates: start: 20150330, end: 20150815

REACTIONS (5)
  - Tongue discolouration [Unknown]
  - Skin hyperpigmentation [Unknown]
  - Pain in extremity [Unknown]
  - Skin discolouration [Unknown]
  - Death [Fatal]

NARRATIVE: CASE EVENT DATE: 20150410
